FAERS Safety Report 8283523-7 (Version None)
Quarter: 2012Q2

REPORT INFORMATION
  Report Type: 
  Country: None (occurrence: None)
  Receive Date: 20120413
  Receipt Date: 20120412
  Transmission Date: 20120825
  Serious: Yes (Death, Other)
  Sender: FDA-Public Use
  Company Number: PHHY2012US005925

PATIENT
  Age: 3 Year
  Sex: Male

DRUGS (3)
  1. FENTANYL [Suspect]
     Indication: SEDATION
  2. MORPHINE [Suspect]
     Indication: SEDATION
  3. LORAZEPAM [Suspect]
     Indication: SEDATION

REACTIONS (4)
  - INSOMNIA [None]
  - DELIRIUM [None]
  - PSYCHOMOTOR HYPERACTIVITY [None]
  - CARDIAC FAILURE CONGESTIVE [None]
